FAERS Safety Report 5516946-7 (Version None)
Quarter: 2007Q4

REPORT INFORMATION
  Report Type: 
  Country: None (occurrence: None)
  Receive Date: 20071114
  Receipt Date: 20070612
  Transmission Date: 20080405
  Serious: No
  Sender: FDA-Public Use
  Company Number: A0655008A

PATIENT
  Age: 72 Year
  Sex: Female

DRUGS (2)
  1. COMMIT [Suspect]
     Dates: start: 20070609
  2. NICODERM CQ [Suspect]

REACTIONS (2)
  - ABNORMAL DREAMS [None]
  - NICOTINE DEPENDENCE [None]
